FAERS Safety Report 9086537 (Version 4)
Quarter: 2013Q3

REPORT INFORMATION
  Report Type: Spontaneous
  Country: TW (occurrence: TW)
  Receive Date: 20130218
  Receipt Date: 20130923
  Transmission Date: 20140515
  Serious: Yes (Other)
  Sender: FDA-Public Use
  Company Number: TW-AMGEN-TWNSP2013010949

PATIENT
  Age: 28 Year
  Sex: Female

DRUGS (6)
  1. ENBREL [Suspect]
     Indication: ANKYLOSING SPONDYLITIS
     Dosage: 25 MG, 2X/WEEK
     Route: 058
     Dates: start: 20100105, end: 201212
  2. ACETAMINOPHEN [Concomitant]
     Indication: ANKYLOSING SPONDYLITIS
     Dosage: 1500 MG/DAY
     Dates: start: 20130204
  3. PREDNISOLONE [Concomitant]
     Indication: ANKYLOSING SPONDYLITIS
     Dosage: 10 MG/DAY
     Dates: start: 20130204
  4. CELECOXIB [Concomitant]
     Indication: ANKYLOSING SPONDYLITIS
     Dosage: 400 MG/DAY
     Dates: start: 20090930, end: 20130203
  5. MAGNESIUM OXIDE [Concomitant]
     Indication: CONSTIPATION
     Dosage: 500 MG/DAY
     Dates: start: 20130219
  6. IWELL [Concomitant]
     Indication: DYSPEPSIA
     Dosage: 1 DF, BID
     Dates: start: 20110630, end: 20130204

REACTIONS (1)
  - Vaginal haemorrhage [Recovered/Resolved]
